FAERS Safety Report 8869155 (Version 1)
Quarter: 2012Q4

REPORT INFORMATION
  Report Type: Spontaneous
  Country: FR (occurrence: None)
  Receive Date: 20121022
  Receipt Date: 20121022
  Transmission Date: 20130627
  Serious: Yes (Hospitalization)
  Sender: FDA-Public Use
  Company Number: DKLU1085175

PATIENT
  Age: 14 Year
  Sex: Male
  Weight: 33.3 kg

DRUGS (10)
  1. COSMEGEN [Suspect]
     Indication: SARCOMA
     Dosage: Intravenous (not otherwise specified)
     Route: 042
     Dates: start: 20090729
  2. VINCRISTINE [Suspect]
     Indication: SARCOMA
     Dosage: Intravenous (not otherwise specifed)
     Route: 042
     Dates: start: 20090729
  3. IFOSFAMIDE [Suspect]
     Dosage: Intravenous (not otherwise specifed)
     Route: 042
     Dates: start: 20090719
  4. DOXORUBICIN [Suspect]
     Indication: SARCOMA
     Dosage: Intravenous (not otherwise specified)
     Route: 042
     Dates: start: 20090729
  5. NEURONTIN [Concomitant]
  6. LAROXYL [Concomitant]
  7. ORAMORPH [Concomitant]
  8. EMEND [Concomitant]
  9. DUROGESIC (FENTANYL) [Concomitant]
  10. ENTEROL (SACCHAROMYCES CEREVISTAE) [Concomitant]

REACTIONS (5)
  - Rhabdomyosarcoma [None]
  - Febrile bone marrow aplasia [None]
  - Diarrhoea [None]
  - Gastroenteritis bacterial [None]
  - Device related infection [None]
